FAERS Safety Report 25901525 (Version 2)
Quarter: 2025Q4

REPORT INFORMATION
  Report Type: Report from Study
  Country: US (occurrence: US)
  Receive Date: 20251009
  Receipt Date: 20251103
  Transmission Date: 20260117
  Serious: Yes (Death, Hospitalization, Other)
  Sender: SANOFI AVENTIS
  Company Number: US-SA-2025SA299991

PATIENT
  Age: 68 Year
  Sex: Male
  Weight: 54 kg

DRUGS (9)
  1. OXALIPLATIN [Suspect]
     Active Substance: OXALIPLATIN
     Indication: Colorectal cancer
     Dosage: 85 MG/M2, QCY(85 MILLIGRAM/SQ. METER,DAYS 1 AND 15 OF EACH 28-DAY CYCLE;)
     Route: 042
     Dates: start: 20250428, end: 20250428
  2. OXALIPLATIN [Suspect]
     Active Substance: OXALIPLATIN
     Dosage: 75 MG/M2, QCY(75 MILLIGRAM/SQ. METER,DAYS 1 AND 15 OF EACH 28-DAY CYCLE;0
     Route: 042
     Dates: start: 20250825, end: 20250825
  3. FLUOROURACIL [Suspect]
     Active Substance: FLUOROURACIL
     Indication: Colorectal cancer
     Dosage: 400 MG/M2, QCY(400 MILLIGRAM/SQ. METER, DAYS 1 AND 15 OF EACH 28 DAY CYCLE)
     Route: 042
     Dates: start: 20250428, end: 20250428
  4. FLUOROURACIL [Suspect]
     Active Substance: FLUOROURACIL
     Dosage: 2400 MG/M2, QCY(2400 MILLIGRAM/SQ. METER, DAYS 1 AND 15 OF EACH 28 DAY CYCLE)
     Route: 042
     Dates: start: 20250428, end: 20250430
  5. FLUOROURACIL [Suspect]
     Active Substance: FLUOROURACIL
     Dosage: 2000 MG/M2, QCY(2000 MILLIGRAM/SQ. METER, DAYS 1 AND 15 OF EACH 28 DAY CYCLE)
     Route: 042
     Dates: start: 20250825, end: 20250827
  6. BEVACIZUMAB [Suspect]
     Active Substance: BEVACIZUMAB
     Indication: Colorectal cancer
     Dosage: 5 MG/KG, QCY(5 MILLIGRAM/KILOGRAM, DAYS 1 AND 15 OF EACH 28-DAY CYCLE)
     Route: 042
     Dates: start: 20250428, end: 20250428
  7. BEVACIZUMAB [Suspect]
     Active Substance: BEVACIZUMAB
     Dosage: 5 MG/KG, QCY(5 MILLIGRAM/KILOGRAM, DAYS 1 AND 15 OF EACH 28-DAY CYCLE)
     Route: 042
     Dates: start: 20250825, end: 20250825
  8. LEUCOVORIN [Suspect]
     Active Substance: LEUCOVORIN\LEUCOVORIN CALCIUM
     Indication: Colorectal cancer
     Dosage: 400 MG/M2, QCY(400 MILLIGRAM/SQ. METER, DAYS 1 AND 15 OF EACH 28-DAY CYCLE)
     Route: 042
     Dates: start: 20250428, end: 20250428
  9. LEUCOVORIN [Suspect]
     Active Substance: LEUCOVORIN\LEUCOVORIN CALCIUM
     Dosage: 400 MG/M2, QCY(400 MILLIGRAM/SQ. METER, DAYS 1 AND 15 OF EACH 28-DAY CYCLE)
     Route: 042
     Dates: start: 20250825, end: 20250825

REACTIONS (3)
  - Cardiac arrest [Fatal]
  - Weight decreased [Not Recovered/Not Resolved]
  - Decreased appetite [Not Recovered/Not Resolved]

NARRATIVE: CASE EVENT DATE: 20250923
